FAERS Safety Report 7416860-6 (Version None)
Quarter: 2011Q2

REPORT INFORMATION
  Report Type: 
  Country: None (occurrence: None)
  Receive Date: 20110415
  Receipt Date: 20110401
  Transmission Date: 20111010
  Serious: Yes (Other)
  Sender: FDA-Public Use
  Company Number: CA-JNJFOC-20110402120

PATIENT
  Sex: Female
  Weight: 70 kg

DRUGS (5)
  1. DEMULEN UNSPECIFIED [Concomitant]
     Route: 065
  2. REMICADE [Suspect]
     Indication: CROHN'S DISEASE
     Route: 042
  3. OMEPRAZOLE [Concomitant]
     Route: 065
  4. VENTOLIN [Concomitant]
     Route: 065
  5. ADVAIR HFA [Concomitant]
     Route: 065

REACTIONS (3)
  - CONDITION AGGRAVATED [None]
  - NASOPHARYNGITIS [None]
  - ASTHMA [None]
